FAERS Safety Report 6358482-4 (Version None)
Quarter: 2009Q3

REPORT INFORMATION
  Report Type: 
  Country: None (occurrence: None)
  Receive Date: 20090916
  Receipt Date: 20090715
  Transmission Date: 20100115
  Serious: No
  Sender: FDA-Public Use
  Company Number: US-AMGEN-KDL355971

PATIENT
  Sex: Male

DRUGS (8)
  1. NEUPOGEN [Suspect]
     Indication: CHEMOTHERAPY
     Route: 058
     Dates: start: 20090109
  2. NAVELBINE [Concomitant]
  3. GEMZAR [Concomitant]
  4. DOXIL [Concomitant]
  5. OMEPRAZOLE [Concomitant]
  6. ACYCLOVIR [Concomitant]
  7. CELEXA [Concomitant]
  8. ZOFRAN [Concomitant]

REACTIONS (3)
  - DRUG INEFFECTIVE [None]
  - INJECTION SITE PAIN [None]
  - RED BLOOD CELL COUNT ABNORMAL [None]
